FAERS Safety Report 7199498 (Version 2)
Quarter: 2016Q1

REPORT INFORMATION
  Report Type: Report from Study
  Country: US (occurrence: US)
  Receive Date: 20091203
  Receipt Date: 20160322
  Transmission Date: 20160526
  Serious: No
  Sender: FDA-Public Use
  Company Number: US-AMGEN-KDL324611

PATIENT
  Age: 53 Year
  Sex: Male

DRUGS (1)
  1. ENBREL [Suspect]
     Active Substance: ETANERCEPT
     Indication: PSORIASIS
     Dosage: 50 MG, 2 TIMES/WK
     Route: 065

REACTIONS (2)
  - Nasopharyngitis [Not Recovered/Not Resolved]
  - Decreased immune responsiveness [Not Recovered/Not Resolved]

NARRATIVE: CASE EVENT DATE: 20081218
